FAERS Safety Report 6653921-3 (Version None)
Quarter: 2010Q1

REPORT INFORMATION
  Report Type: 
  Country: None (occurrence: None)
  Receive Date: 20100326
  Receipt Date: 20100316
  Transmission Date: 20100710
  Serious: No
  Sender: FDA-Public Use
  Company Number: FR-JNJFOC-20100304848

PATIENT

DRUGS (1)
  1. DURAGESIC-100 [Suspect]
     Indication: DRUG USE FOR UNKNOWN INDICATION
     Dosage: 75 UG/HR 2 PATCHES AND 50 UG/HR PATCH
     Route: 062

REACTIONS (2)
  - DRUG DOSE OMISSION [None]
  - INCORRECT DRUG ADMINISTRATION DURATION [None]
